FAERS Safety Report 5958871-3 (Version None)
Quarter: 2008Q4

REPORT INFORMATION
  Report Type: 
  Country: None (occurrence: None)
  Receive Date: 20081117
  Receipt Date: 20081107
  Transmission Date: 20090506
  Serious: Yes (Hospitalization)
  Sender: FDA-Public Use
  Company Number: THQ2008A02383

PATIENT
  Age: 72 Year
  Sex: Female

DRUGS (5)
  1. ACTOS [Suspect]
     Indication: DIABETES MELLITUS
     Dosage: 30 MG (30 MG, 1 IN 1 D) PER ORAL
     Route: 048
     Dates: start: 20050101, end: 20081013
  2. ATACAND HCT [Concomitant]
  3. DILTIAZEM HYDROCHLORIDE [Concomitant]
  4. SOLOSA (GLIMEPIRIDE) [Concomitant]
  5. GLUCOPHAGE [Concomitant]

REACTIONS (2)
  - CONFUSIONAL STATE [None]
  - HYPONATRAEMIA [None]
